FAERS Safety Report 13006588 (Version 1)
Quarter: 2016Q4

REPORT INFORMATION
  Report Type: Spontaneous
  Country: US (occurrence: US)
  Receive Date: 20161207
  Receipt Date: 20161207
  Transmission Date: 20170207
  Serious: Yes (Other)
  Sender: FDA-Public Use
  Company Number: None

PATIENT
  Age: 33 Year
  Sex: Female
  Weight: 53.1 kg

DRUGS (1)
  1. CLARITHROMYCIN 500 MG [Suspect]
     Active Substance: CLARITHROMYCIN
     Indication: HELICOBACTER INFECTION
     Dosage: ?          QUANTITY:2 TABLET(S);?
     Route: 048

REACTIONS (4)
  - Impaired driving ability [None]
  - Head discomfort [None]
  - Confusional state [None]
  - Dissociation [None]

NARRATIVE: CASE EVENT DATE: 20161205
